FAERS Safety Report 11179823 (Version 1)
Quarter: 2015Q2

REPORT INFORMATION
  Report Type: Spontaneous
  Country: DE (occurrence: DE)
  Receive Date: 20150611
  Receipt Date: 20150611
  Transmission Date: 20150821
  Serious: Yes (Other)
  Sender: FDA-Public Use
  Company Number: DE-SUN PHARMACEUTICAL INDUSTRIES LTD-2015R1-98995

PATIENT
  Age: 36 Year
  Sex: Female
  Weight: 77 kg

DRUGS (3)
  1. METHYLDOPA. [Concomitant]
     Active Substance: METHYLDOPA
     Indication: HYPERTENSION
     Dosage: 250 MG, TID
     Route: 048
     Dates: start: 20140902, end: 20150103
  2. FLOSAURE [Concomitant]
     Indication: VITAMIN SUPPLEMENTATION
     Dosage: UNK
     Route: 048
     Dates: start: 20140901, end: 20150103
  3. CANDESARTAN + HYDROCHLOROTHIAZIDE [Suspect]
     Active Substance: CANDESARTAN CILEXETIL\HYDROCHLOROTHIAZIDE
     Indication: HYPERTENSION
     Dosage: 8 MG, QD
     Route: 048
     Dates: start: 20140406, end: 20140901

REACTIONS (1)
  - Oligohydramnios [Recovered/Resolved]
